FAERS Safety Report 13791164 (Version 3)
Quarter: 2018Q3

REPORT INFORMATION
  Report Type: Spontaneous
  Country: CA (occurrence: CA)
  Receive Date: 20170725
  Receipt Date: 20180808
  Transmission Date: 20181010
  Serious: Yes (Death, Other)
  Sender: FDA-Public Use
  Company Number: CA-PFIZER INC-2016371967

PATIENT
  Age: 57 Year
  Sex: Female

DRUGS (3)
  1. XELJANZ [Suspect]
     Active Substance: TOFACITINIB CITRATE
     Dosage: 5 MG, AS NEEDED
     Route: 048
  2. XELJANZ [Suspect]
     Active Substance: TOFACITINIB CITRATE
     Indication: RHEUMATOID ARTHRITIS
     Dosage: 5 MG, 2X/DAY
     Route: 048
     Dates: start: 20151117, end: 20160815
  3. REACTINE /00884302/ [Concomitant]
     Active Substance: CETIRIZINE HYDROCHLORIDE
     Dosage: UNK

REACTIONS (25)
  - Weight increased [Not Recovered/Not Resolved]
  - Dizziness [Unknown]
  - Burnout syndrome [Not Recovered/Not Resolved]
  - Dermatitis [Recovering/Resolving]
  - Chest pain [Unknown]
  - Fatigue [Not Recovered/Not Resolved]
  - Chemical poisoning [Not Recovered/Not Resolved]
  - Depressed mood [Not Recovered/Not Resolved]
  - Nerve injury [Not Recovered/Not Resolved]
  - Intentional product misuse [Unknown]
  - Swelling [Not Recovered/Not Resolved]
  - Dyspnoea [Not Recovered/Not Resolved]
  - Urticaria [Recovering/Resolving]
  - Psychomotor hyperactivity [Not Recovered/Not Resolved]
  - Anal incontinence [Not Recovered/Not Resolved]
  - Rash [Not Recovered/Not Resolved]
  - Anxiety [Not Recovered/Not Resolved]
  - Condition aggravated [Unknown]
  - Ligament sprain [Unknown]
  - Death [Fatal]
  - Insomnia [Not Recovered/Not Resolved]
  - Stress [Not Recovered/Not Resolved]
  - Oropharyngeal pain [Not Recovered/Not Resolved]
  - Abdominal discomfort [Not Recovered/Not Resolved]
  - Pruritus [Not Recovered/Not Resolved]

NARRATIVE: CASE EVENT DATE: 20160814
